FAERS Safety Report 4355072-X (Version None)
Quarter: 2004Q2

REPORT INFORMATION
  Report Type: 
  Country: None (occurrence: None)
  Receive Date: 20040504
  Receipt Date: 20040423
  Transmission Date: 20050107
  Serious: Yes (Death, Hospitalization)
  Sender: FDA-Public Use
  Company Number: 03P-056-0216630-00

PATIENT
  Age: 67 Year
  Sex: Male

DRUGS (4)
  1. TRICOR [Suspect]
     Indication: HYPERCHOLESTEROLAEMIA
     Dosage: 200 MG, 1 IN 1 D, ORAL
     Route: 048
     Dates: end: 20030204
  2. DANAZOL [Concomitant]
  3. LERCANIDIPINE [Concomitant]
  4. METYHYLPREDNISOLONE [Concomitant]

REACTIONS (37)
  - ACUTE RESPIRATORY DISTRESS SYNDROME [None]
  - AMMONIA INCREASED [None]
  - ARRHYTHMIA [None]
  - AUTOIMMUNE THROMBOCYTOPENIA [None]
  - CHEST PAIN [None]
  - COLITIS ULCERATIVE [None]
  - CONGESTIVE CARDIOMYOPATHY [None]
  - CYTOLYTIC HEPATITIS [None]
  - CYTOMEGALOVIRUS GASTROENTERITIS [None]
  - CYTOMEGALOVIRUS INFECTION [None]
  - CYTOMEGALOVIRUS TEST POSITIVE [None]
  - DISEASE RECURRENCE [None]
  - DRUG INEFFECTIVE [None]
  - DYSPHAGIA [None]
  - ENCEPHALOPATHY [None]
  - ENTERITIS NECROTICANS [None]
  - EROSIVE DUODENITIS [None]
  - GENERAL PHYSICAL HEALTH DETERIORATION [None]
  - HAEMODIALYSIS [None]
  - HEPATITIS CHOLESTATIC [None]
  - HEPATITIS FULMINANT [None]
  - HYPERBILIRUBINAEMIA [None]
  - LACTIC ACIDOSIS [None]
  - LUNG DISORDER [None]
  - NECROTISING COLITIS [None]
  - PANCREATITIS [None]
  - PNEUMONIA [None]
  - PNEUMONIA ASPIRATION [None]
  - PROTHROMBIN TIME SHORTENED [None]
  - RED BLOOD CELL COUNT DECREASED [None]
  - RENAL FAILURE ACUTE [None]
  - RENAL FAILURE CHRONIC [None]
  - RENAL TUBULAR NECROSIS [None]
  - SEPSIS [None]
  - SUPERINFECTION [None]
  - VENTRICULAR FIBRILLATION [None]
  - WEIGHT DECREASED [None]
